FAERS Safety Report 6575442-9 (Version None)
Quarter: 2010Q1

REPORT INFORMATION
  Report Type: 
  Country: None (occurrence: None)
  Receive Date: 20100202
  Receipt Date: 20100118
  Transmission Date: 20100710
  Serious: Yes (Death)
  Sender: FDA-Public Use
  Company Number: 2010S1000026

PATIENT
  Age: 4 Year
  Sex: Female

DRUGS (1)
  1. ROXICODONE [Suspect]
     Dosage: ; PO
     Route: 048
     Dates: end: 20080101

REACTIONS (5)
  - ACCIDENTAL DRUG INTAKE BY CHILD [None]
  - CARDIAC ARREST [None]
  - EXPOSURE TO TOXIC AGENT [None]
  - RESPIRATORY ARREST [None]
  - UNRESPONSIVE TO STIMULI [None]
